FAERS Safety Report 6664510-9 (Version None)
Quarter: 2010Q2

REPORT INFORMATION
  Report Type: 
  Country: None (occurrence: None)
  Receive Date: 20100401
  Receipt Date: 20100318
  Transmission Date: 20101027
  Serious: Yes (Death, Other)
  Sender: FDA-Public Use
  Company Number: US-PFIZER INC-2010020888

PATIENT
  Sex: Male
  Weight: 79.365 kg

DRUGS (5)
  1. VFEND [Suspect]
     Indication: FUNGAL SKIN INFECTION
     Dosage: 200 MG, 2X/DAY
     Route: 048
     Dates: start: 20091001
  2. MORPHINE [Concomitant]
     Dosage: UNK
  3. FENTANYL [Concomitant]
     Dosage: UNK
  4. VICODIN [Concomitant]
     Dosage: UNK
  5. AMICAR [Concomitant]
     Dosage: UNK

REACTIONS (4)
  - BLOOD LACTATE DEHYDROGENASE ABNORMAL [None]
  - FULL BLOOD COUNT ABNORMAL [None]
  - LEUKAEMIA [None]
  - METABOLIC FUNCTION TEST ABNORMAL [None]
